FAERS Safety Report 15782186 (Version 1)
Quarter: 2019Q1

REPORT INFORMATION
  Report Type: Spontaneous
  Country: US (occurrence: US)
  Receive Date: 20190102
  Receipt Date: 20190102
  Transmission Date: 20190417
  Serious: Yes (Hospitalization)
  Sender: FDA-Public Use
  Company Number: US-JNJFOC-20181235346

PATIENT
  Age: 46 Year
  Sex: Male

DRUGS (1)
  1. INVOKANA [Suspect]
     Active Substance: CANAGLIFLOZIN
     Indication: TYPE 2 DIABETES MELLITUS
     Route: 048
     Dates: start: 20170102, end: 20171130

REACTIONS (4)
  - Arthritis bacterial [Unknown]
  - Cellulitis [Unknown]
  - Foot amputation [Unknown]
  - Gas gangrene [Unknown]

NARRATIVE: CASE EVENT DATE: 20171130
